FAERS Safety Report 20581351 (Version 1)
Quarter: 2022Q1

REPORT INFORMATION
  Report Type: Spontaneous
  Country: FR (occurrence: FR)
  Receive Date: 20220311
  Receipt Date: 20220311
  Transmission Date: 20220423
  Serious: Yes (Hospitalization)
  Sender: FDA-Public Use
  Company Number: None

PATIENT
  Age: 86 Year
  Sex: Male

DRUGS (9)
  1. PREGABALIN [Suspect]
     Active Substance: PREGABALIN
     Dosage: LONG COURSE
     Route: 065
  2. LANSOPRAZOLE [Suspect]
     Active Substance: LANSOPRAZOLE
     Dosage: LONG COURSE
     Route: 065
     Dates: end: 202202
  3. RIVAROXABAN [Suspect]
     Active Substance: RIVAROXABAN
     Dosage: LONG COURSE
     Route: 065
  4. ALPRAZOLAM [Suspect]
     Active Substance: ALPRAZOLAM
     Dosage: LONG COURSE
     Route: 065
  5. ATENOLOL [Suspect]
     Active Substance: ATENOLOL
     Dosage: LONG COURSE
     Route: 065
  6. DECAPEPTYL (ACETATE) [Suspect]
     Active Substance: TRIPTORELIN ACETATE
     Dosage: LONG COURSE
     Route: 065
  7. GEMZAR [Suspect]
     Active Substance: GEMCITABINE HYDROCHLORIDE
     Dosage: LONG COURSE
     Route: 065
  8. EZETIMIBE\SIMVASTATIN [Suspect]
     Active Substance: EZETIMIBE\SIMVASTATIN
     Dosage: LONG COURSE
     Route: 065
     Dates: end: 202202
  9. OXYCODONE [Suspect]
     Active Substance: OXYCODONE
     Dosage: 2022
     Route: 065

REACTIONS (1)
  - Confusional state [Recovering/Resolving]

NARRATIVE: CASE EVENT DATE: 20220204
